FAERS Safety Report 24193363 (Version 2)
Quarter: 2024Q3

REPORT INFORMATION
  Report Type: Spontaneous
  Country: IT (occurrence: IT)
  Receive Date: 20240809
  Receipt Date: 20240907
  Transmission Date: 20241016
  Serious: Yes (Death, Other)
  Sender: AMGEN
  Company Number: IT-AMGEN-ITASP2024155075

PATIENT

DRUGS (1)
  1. ADALIMUMAB [Suspect]
     Active Substance: ADALIMUMAB
     Indication: Exposure during pregnancy
     Dosage: UNK
     Route: 064

REACTIONS (8)
  - Stillbirth [Fatal]
  - Foetal death [Fatal]
  - Foetal distress syndrome [Unknown]
  - Low birth weight baby [Unknown]
  - Weight decrease neonatal [Unknown]
  - Umbilical cord around neck [Unknown]
  - Rhesus incompatibility [Unknown]
  - Foetal exposure during pregnancy [Unknown]
